FAERS Safety Report 6835918-3 (Version None)
Quarter: 2010Q3

REPORT INFORMATION
  Report Type: 
  Country: None (occurrence: None)
  Receive Date: 20100712
  Receipt Date: 20100712
  Transmission Date: 20110219
  Serious: No
  Sender: FDA-Public Use
  Company Number: None

PATIENT
  Sex: Female
  Weight: 33.1 kg

DRUGS (1)
  1. SOLADEK N VIT D 360,000 IU IN 3ML INDO-PHARMA, DOM. REP. [Suspect]
     Dosage: 3ML ONCE WEEKLY ORAL
     Route: 048

REACTIONS (1)
  - BLOOD 1,25-DIHYDROXYCHOLECALCIFEROL INCREASED [None]
